FAERS Safety Report 4945938-1 (Version None)
Quarter: 2006Q1

REPORT INFORMATION
  Report Type: 
  Country: None (occurrence: None)
  Receive Date: 20060316
  Receipt Date: 20060305
  Transmission Date: 20060701
  Serious: Yes (Hospitalization)
  Sender: FDA-Public Use
  Company Number: FR-BOEHRINGER INGELHEIM PHARMACEUTICALS, INC.-2006-FF-00189FF

PATIENT
  Age: 40 Year
  Sex: Male

DRUGS (4)
  1. VIRAMUNE [Suspect]
     Dates: start: 20040401, end: 20050901
  2. VIRAMUNE [Suspect]
     Dates: start: 20051101
  3. COMBIVIR [Suspect]
     Dates: start: 20040401, end: 20050901
  4. COMBIVIR [Suspect]
     Dates: start: 20051101

REACTIONS (2)
  - CYTOLYTIC HEPATITIS [None]
  - LUNG DISORDER [None]
